FAERS Safety Report 5549833-9 (Version None)
Quarter: 2007Q4

REPORT INFORMATION
  Report Type: 
  Country: None (occurrence: None)
  Receive Date: 20071212
  Receipt Date: 20071210
  Transmission Date: 20080405
  Serious: Yes (Hospitalization, Other)
  Sender: FDA-Public Use
  Company Number: FR-BRISTOL-MYERS SQUIBB COMPANY-14010011

PATIENT
  Age: 37 Year
  Sex: Female

DRUGS (5)
  1. HYDREA [Suspect]
     Indication: ACUTE MYELOID LEUKAEMIA
     Route: 048
     Dates: start: 20070830, end: 20070831
  2. ARACYTINE [Suspect]
     Indication: ACUTE MYELOID LEUKAEMIA
     Dosage: ALSO GIVEN AS 40MG INTRATHECAL ON 05-SEP-07. 200 MG/M2 FROM D1 TO D7
     Route: 042
     Dates: start: 20070831, end: 20070906
  3. CERUBIDINE [Suspect]
     Indication: ACUTE MYELOID LEUKAEMIA
     Dosage: 60MG/M2 FROM D1-D3.
     Route: 042
     Dates: start: 20070831, end: 20070902
  4. METHOTREXATE-TEVA [Suspect]
     Indication: ACUTE MYELOID LEUKAEMIA
     Route: 037
     Dates: start: 20070905
  5. DEPO-MEDROL [Suspect]
     Indication: ACUTE MYELOID LEUKAEMIA
     Dosage: STRENGTH-80MG/2ML.
     Route: 037
     Dates: start: 20070905, end: 20070905

REACTIONS (5)
  - BONE MARROW FAILURE [None]
  - HYPERAMYLASAEMIA [None]
  - HYPERLIPASAEMIA [None]
  - PANCREATITIS ACUTE [None]
  - PERITONEAL EFFUSION [None]
